FAERS Safety Report 7954996-1 (Version None)
Quarter: 2011Q4

REPORT INFORMATION
  Report Type: 
  Country: None (occurrence: None)
  Receive Date: 20111202
  Receipt Date: 20111124
  Transmission Date: 20120403
  Serious: Yes (Other)
  Sender: FDA-Public Use
  Company Number: PHHY2011KR105140

PATIENT
  Age: 39 Year
  Sex: Male

DRUGS (4)
  1. CYCLOSPORINE [Concomitant]
     Indication: IMMUNOSUPPRESSION
     Dosage: 200 MG, QD
  2. AZATHIOPRINE [Concomitant]
     Indication: IMMUNOSUPPRESSION
     Dosage: 250 MG, QD
  3. DILTIAZEM HCL [Concomitant]
     Indication: HYPERTENSION
     Dosage: 60 MG, QD
  4. PREDNISOLONE [Suspect]
     Dosage: 10 MG, QD

REACTIONS (1)
  - CHORIORETINOPATHY [None]
